FAERS Safety Report 23702645 (Version 1)
Quarter: 2024Q2

REPORT INFORMATION
  Report Type: Spontaneous
  Country: US (occurrence: US)
  Receive Date: 20240403
  Receipt Date: 20240403
  Transmission Date: 20240716
  Serious: Yes (Other)
  Sender: FDA-Public Use
  Company Number: US-002147023-NVSC2024US068712

PATIENT
  Age: 55 Year
  Sex: Male

DRUGS (5)
  1. BASILIXIMAB [Suspect]
     Active Substance: BASILIXIMAB
     Indication: Graft versus host disease
     Dosage: 20 MG, RECEIVED ON DAY 1, 4, 7, 14, 21, 28, FOLLOWED BY ALTERNATE WEEK AND THEN MONTHLY DOSING FOR 2
     Route: 065
  2. PREDNISONE [Suspect]
     Active Substance: PREDNISONE
     Indication: Graft versus host disease
     Dosage: UNK
     Route: 065
  3. PREDNISONE [Suspect]
     Active Substance: PREDNISONE
     Indication: Myelosuppression
  4. SIROLIMUS [Suspect]
     Active Substance: SIROLIMUS
     Indication: Graft versus host disease
     Dosage: UNK
     Route: 065
  5. SIROLIMUS [Suspect]
     Active Substance: SIROLIMUS
     Indication: Myelosuppression

REACTIONS (3)
  - Pneumonia [Recovered/Resolved]
  - Cytomegalovirus infection [Recovered/Resolved]
  - Off label use [Unknown]
